FAERS Safety Report 10376217 (Version 1)
Quarter: 2014Q3

REPORT INFORMATION
  Report Type: Spontaneous
  Country: US (occurrence: US)
  Receive Date: 20140811
  Receipt Date: 20140811
  Transmission Date: 20150326
  Serious: No
  Sender: FDA-Public Use
  Company Number: US-ASTRAZENECA-2014SE13880

PATIENT
  Age: 77 Year
  Sex: Female
  Weight: 65.8 kg

DRUGS (8)
  1. TEGRETOL XR [Concomitant]
     Active Substance: CARBAMAZEPINE
     Indication: BRAIN NEOPLASM
     Route: 048
     Dates: start: 2004
  2. CALCIUM CITRATE [Concomitant]
     Active Substance: CALCIUM CITRATE
     Indication: OSTEOPOROSIS
     Route: 048
  3. ARIMIDEX [Suspect]
     Active Substance: ANASTROZOLE
     Indication: BREAST CANCER
     Route: 048
     Dates: start: 201207
  4. LIPITOR [Concomitant]
     Active Substance: ATORVASTATIN CALCIUM
     Indication: BLOOD CHOLESTEROL ABNORMAL
     Route: 048
     Dates: start: 201402
  5. ZOMETA INFUSION [Concomitant]
     Indication: OSTEOPOROSIS
     Dosage: UNKNOWN UNK
     Dates: start: 2012
  6. VITAMIN E [Concomitant]
     Active Substance: .ALPHA.-TOCOPHEROL
     Indication: OSTEOPOROSIS
     Dosage: 2 PILLS DAILY
     Route: 048
     Dates: start: 2009
  7. MULTIVITAMIN [Concomitant]
     Active Substance: VITAMINS
     Indication: VITAMIN SUPPLEMENTATION
     Dosage: UNKNOWN UNK
     Route: 048
  8. LOW DOSE ASPIRIN [Concomitant]
     Active Substance: ASPIRIN
     Dosage: LOW DOSE UNK
     Route: 048
     Dates: start: 2004

REACTIONS (4)
  - Osteoporosis [Unknown]
  - Insomnia [Not Recovered/Not Resolved]
  - Immune system disorder [Unknown]
  - Fatigue [Unknown]

NARRATIVE: CASE EVENT DATE: 2012
